FAERS Safety Report 5295672-6 (Version None)
Quarter: 2007Q2

REPORT INFORMATION
  Report Type: 
  Country: None (occurrence: None)
  Receive Date: 20070410
  Receipt Date: 20070410
  Transmission Date: 20071010
  Serious: Yes (Other)
  Sender: FDA-Public Use
  Company Number: None

PATIENT
  Age: 48 Year
  Sex: Female
  Weight: 83.9154 kg

DRUGS (1)
  1. COZAAR [Suspect]
     Indication: HYPERTENSION
     Dosage: 1 TABLET  ONCE/DAY  PO
     Route: 048
     Dates: start: 20070404, end: 20070406

REACTIONS (6)
  - BACK PAIN [None]
  - CHEST PAIN [None]
  - LOCAL SWELLING [None]
  - MOVEMENT DISORDER [None]
  - PAIN IN EXTREMITY [None]
  - TENDERNESS [None]
